FAERS Safety Report 15246158 (Version 7)
Quarter: 2019Q1

REPORT INFORMATION
  Report Type: Report from Study
  Country: CN (occurrence: CN)
  Receive Date: 20180806
  Receipt Date: 20190320
  Transmission Date: 20190417
  Serious: Yes (Hospitalization)
  Sender: FDA-Public Use
  Company Number: CN-EISAI MEDICAL RESEARCH-EC-2018-039665

PATIENT
  Age: 80 Year
  Sex: Female
  Weight: 53.5 kg

DRUGS (14)
  1. LENVATINIB [Suspect]
     Active Substance: LENVATINIB
     Route: 048
     Dates: start: 20180513, end: 20180730
  2. LENVATINIB [Suspect]
     Active Substance: LENVATINIB
     Route: 048
     Dates: start: 20180814, end: 20180827
  3. ETOMIDATE. [Concomitant]
     Active Substance: ETOMIDATE
  4. NIFEDIPINE. [Concomitant]
     Active Substance: NIFEDIPINE
  5. LENVATINIB [Suspect]
     Active Substance: LENVATINIB
     Route: 048
     Dates: start: 20180905, end: 20181204
  6. PANTOPRAZOLE [Concomitant]
     Active Substance: PANTOPRAZOLE
  7. PROPOFOL. [Concomitant]
     Active Substance: PROPOFOL
  8. METHOXAMINE [Concomitant]
     Active Substance: METHOXAMINE
  9. LENVATINIB [Suspect]
     Active Substance: LENVATINIB
     Indication: THYROID CANCER
     Route: 048
     Dates: start: 20180312, end: 20180428
  10. NICARDIPINE [Concomitant]
     Active Substance: NICARDIPINE
  11. POTASSIUM CHLORIDE. [Concomitant]
     Active Substance: POTASSIUM CHLORIDE
  12. CHLORHEXIDINE GLUCONATE. [Concomitant]
     Active Substance: CHLORHEXIDINE GLUCONATE
  13. SODIUM CHLORIDE. [Concomitant]
     Active Substance: SODIUM CHLORIDE
  14. OMEPRAZOLE. [Concomitant]
     Active Substance: OMEPRAZOLE

REACTIONS (3)
  - Glomerulonephritis chronic [Recovered/Resolved]
  - Mouth haemorrhage [Recovered/Resolved]
  - Femoral neck fracture [Not Recovered/Not Resolved]

NARRATIVE: CASE EVENT DATE: 20180428
